FAERS Safety Report 4936085-3 (Version None)
Quarter: 2006Q1

REPORT INFORMATION
  Report Type: 
  Country: None (occurrence: None)
  Receive Date: 20060307
  Receipt Date: 20051006
  Transmission Date: 20060701
  Serious: No
  Sender: FDA-Public Use
  Company Number: US-GLAXOSMITHKLINE-A0577379A

PATIENT
  Age: 52 Year
  Sex: Male

DRUGS (3)
  1. REQUIP [Suspect]
     Indication: RESTLESS LEGS SYNDROME
     Dosage: .25MG PER DAY
     Route: 048
     Dates: start: 20020101
  2. SERZONE [Concomitant]
  3. WELLBUTRIN SR [Concomitant]

REACTIONS (2)
  - COGNITIVE DETERIORATION [None]
  - HANGOVER [None]
